FAERS Safety Report 20542316 (Version 1)
Quarter: 2022Q1

REPORT INFORMATION
  Report Type: Spontaneous
  Country: EC (occurrence: EC)
  Receive Date: 20220302
  Receipt Date: 20220302
  Transmission Date: 20220423
  Serious: Yes (Other)
  Sender: FDA-Public Use
  Company Number: EC-TAKEDA-2022TUS013706

PATIENT
  Sex: Male
  Weight: 24 kg

DRUGS (1)
  1. COAGULATION FACTOR IX RECOMBINANT HUMAN [Suspect]
     Active Substance: COAGULATION FACTOR IX RECOMBINANT HUMAN
     Indication: Product used for unknown indication
     Dosage: 600 INTERNATIONAL UNIT, 2/WEEK
     Route: 042

REACTIONS (6)
  - Haemorrhage intracranial [Unknown]
  - Fall [Unknown]
  - Central nervous system injury [Unknown]
  - Epilepsy [Unknown]
  - Expired product administered [Unknown]
  - Inappropriate schedule of product administration [Unknown]
